FAERS Safety Report 21649970 (Version 1)
Quarter: 2022Q4

REPORT INFORMATION
  Report Type: Other
  Country: IT (occurrence: IT)
  Receive Date: 20221128
  Receipt Date: 20221128
  Transmission Date: 20230113
  Serious: Yes (Hospitalization)
  Sender: FDA-Public Use
  Company Number: IT-ROCHE-3195397

PATIENT
  Age: 1 Year
  Sex: Male
  Weight: 12.5 kg

DRUGS (2)
  1. RITUXIMAB [Suspect]
     Active Substance: RITUXIMAB
     Indication: Immunosuppressant drug therapy
     Route: 065
  2. SOTROVIMAB [Concomitant]
     Active Substance: SOTROVIMAB
     Dates: start: 20220108

REACTIONS (2)
  - COVID-19 [Unknown]
  - Off label use [Unknown]
